FAERS Safety Report 18899179 (Version 1)
Quarter: 2021Q1

REPORT INFORMATION
  Report Type: Other
  Country: KR (occurrence: KR)
  Receive Date: 20210216
  Receipt Date: 20210216
  Transmission Date: 20210420
  Serious: Yes (Hospitalization, Other)
  Sender: FDA-Public Use
  Company Number: KR-ROCHE-2714683

PATIENT
  Age: 76 Year
  Sex: Male
  Weight: 87.1 kg

DRUGS (1)
  1. ATEZOLIZUMAB. [Suspect]
     Active Substance: ATEZOLIZUMAB
     Indication: NON-SMALL CELL LUNG CANCER METASTATIC
     Dosage: SUBSEQUENT DOSE ON: 24/APR/2020, 15/MAY/2020, 09/JUN/2020, 29/JUN/2020, 20/JUL/2020, 10/AUG/2020 , 3
     Route: 042
     Dates: start: 20200402

REACTIONS (8)
  - Nephrolithiasis [Recovering/Resolving]
  - Pyrexia [Recovered/Resolved]
  - Gastrooesophageal reflux disease [Recovering/Resolving]
  - Pulmonary mass [Recovering/Resolving]
  - Haematuria [Recovering/Resolving]
  - Diarrhoea [Recovered/Resolved]
  - Chronic kidney disease [Recovering/Resolving]
  - Glomerular filtration rate decreased [Recovering/Resolving]

NARRATIVE: CASE EVENT DATE: 20200515
